FAERS Safety Report 5004925-8 (Version None)
Quarter: 2006Q1

REPORT INFORMATION
  Report Type: 
  Country: None (occurrence: None)
  Receive Date: 20060321
  Receipt Date: 20060103
  Transmission Date: 20060701
  Serious: No
  Sender: FDA-Public Use
  Company Number: YPA20050616

PATIENT
  Age: 84 Year
  Sex: Male

DRUGS (2)
  1. VESICARE [Suspect]
     Dosage: ORAL
     Route: 048
     Dates: start: 20051001, end: 20051130
  2. FLOMAX [Concomitant]

REACTIONS (1)
  - URINARY RETENTION [None]
